FAERS Safety Report 8496449 (Version 3)
Quarter: 2013Q1

REPORT INFORMATION
  Report Type: Spontaneous
  Country: CA (occurrence: CA)
  Receive Date: 20120405
  Receipt Date: 20130308
  Transmission Date: 20140127
  Serious: Yes (Other)
  Sender: FDA-Public Use
  Company Number: PHHY2012CA027753

PATIENT
  Age: 51 Year
  Sex: Male

DRUGS (1)
  1. VALSARTAN+HYDROCHLOROTHIAZIDE [Suspect]
     Indication: HYPERTENSION
     Dosage: 160/25MG
     Route: 048
     Dates: start: 20111003

REACTIONS (2)
  - Swollen tongue [Recovered/Resolved]
  - Oedema peripheral [Recovered/Resolved]
